FAERS Safety Report 5721517-3 (Version None)
Quarter: 2008Q2

REPORT INFORMATION
  Report Type: 
  Country: None (occurrence: None)
  Receive Date: 20080429
  Receipt Date: 20080425
  Transmission Date: 20081010
  Serious: Yes (Hospitalization, Other)
  Sender: FDA-Public Use
  Company Number: FR-WYE-G01465808

PATIENT
  Sex: Female
  Weight: 20 kg

DRUGS (2)
  1. ADVIL [Suspect]
     Indication: CYST
     Dosage: UNKNOWN
     Route: 048
     Dates: start: 20080201, end: 20080201
  2. ORELOX [Suspect]
     Indication: CYST
     Dosage: UNKNOWN
     Route: 048
     Dates: start: 20080201, end: 20080201

REACTIONS (3)
  - DYSGRAPHIA [None]
  - HEADACHE [None]
  - VISUAL DISTURBANCE [None]
